FAERS Safety Report 17638227 (Version 1)
Quarter: 2020Q2

REPORT INFORMATION
  Report Type: Spontaneous
  Country: US (occurrence: US)
  Receive Date: 20200407
  Receipt Date: 20200407
  Transmission Date: 20200713
  Serious: No
  Sender: FDA-Public Use
  Company Number: None

PATIENT
  Age: 77 Year
  Sex: Male
  Weight: 59.4 kg

DRUGS (5)
  1. ZYTIGA 250MG , ORAL [Concomitant]
     Dates: start: 20171214, end: 20181120
  2. ABIRATERONE 250 MG, ORAL [Concomitant]
     Dates: start: 20191101, end: 20200407
  3. XGEVA [Suspect]
     Active Substance: DENOSUMAB
     Indication: PROSTATIC DISORDER
     Dosage: ?          OTHER FREQUENCY:EVERY 4 WEEKS;?
     Route: 048
     Dates: start: 20191016, end: 20200407
  4. FLOMAX 0.4MG, ORAL [Concomitant]
     Dates: end: 20200407
  5. PREDNISONE 5 MG, ORAL [Concomitant]
     Dates: start: 20200330, end: 20200407

REACTIONS (1)
  - Death [None]

NARRATIVE: CASE EVENT DATE: 20200407
